FAERS Safety Report 13191727 (Version 2)
Quarter: 2017Q1

REPORT INFORMATION
  Report Type: Spontaneous
  Country: CN (occurrence: CN)
  Receive Date: 20170207
  Receipt Date: 20170222
  Transmission Date: 20170428
  Serious: Yes (Other)
  Sender: FDA-Public Use
  Company Number: CN-ALVOGEN-2017-ALVOGEN-091393

PATIENT
  Age: 49 Year
  Sex: Female

DRUGS (5)
  1. VINCRISTINE [Suspect]
     Active Substance: VINCRISTINE
     Indication: LYMPHOMA
     Dosage: CHEMOTHERAPY REGIMEN BETWEEN JANUARY AND JULY 2016, AND ON APRIL 27
     Dates: start: 201601, end: 201607
  2. CYCLOPHOSPHAMIDE. [Suspect]
     Active Substance: CYCLOPHOSPHAMIDE
     Indication: LYMPHOMA
     Dosage: CHEMOTHERAPY REGIMEN BETWEEN JANUARY AND JULY 2016, AND ON APRIL 27
     Dates: start: 201601, end: 201607
  3. RITUXIMAB [Suspect]
     Active Substance: RITUXIMAB
     Indication: LYMPHOMA
     Dosage: CHEMOTHERAPY REGIMEN BETWEEN JANUARY AND JULY 2016, AND ON APRIL 27
     Dates: start: 201601, end: 201607
  4. PREDNISOLONE. [Suspect]
     Active Substance: PREDNISOLONE
     Indication: LYMPHOMA
     Dosage: CHEMOTHERAPY REGIMEN BETWEEN JANUARY AND JULY 2016, AND ON APRIL 27
     Dates: start: 201601, end: 201607
  5. DOXORUBICIN [Suspect]
     Active Substance: DOXORUBICIN
     Indication: LYMPHOMA
     Dosage: CHEMOTHERAPY REGIMEN BETWEEN JANUARY AND JULY 2016
     Dates: start: 201601, end: 201607

REACTIONS (4)
  - Therapy partial responder [Unknown]
  - Subcutaneous emphysema [Recovered/Resolved]
  - Pneumomediastinum [Recovered/Resolved]
  - Respiratory failure [Unknown]

NARRATIVE: CASE EVENT DATE: 20160427
